FAERS Safety Report 16428256 (Version 1)
Quarter: 2019Q2

REPORT INFORMATION
  Report Type: Report from Study
  Country: CA (occurrence: CA)
  Receive Date: 20190613
  Receipt Date: 20190613
  Transmission Date: 20190711
  Serious: Yes (Hospitalization)
  Sender: FDA-Public Use
  Company Number: CA-TAKEDA-2019TUS036610

PATIENT
  Age: 60 Year
  Sex: Male

DRUGS (4)
  1. MEZAVANT [Concomitant]
     Active Substance: MESALAMINE
     Dosage: 300 MILLIGRAM
     Route: 042
     Dates: start: 20181123
  2. MEZAVANT [Concomitant]
     Active Substance: MESALAMINE
     Dosage: 300 MILLIGRAM
     Route: 042
     Dates: start: 20181123
  3. MEZAVANT [Concomitant]
     Active Substance: MESALAMINE
     Dosage: 300 MILLIGRAM
     Route: 042
     Dates: start: 20181123
  4. VEDOLIZUMAB [Suspect]
     Active Substance: VEDOLIZUMAB
     Indication: COLITIS ULCERATIVE
     Dosage: 300 MILLIGRAM
     Route: 042
     Dates: start: 20181123

REACTIONS (2)
  - Chest pain [Unknown]
  - Off label use [Unknown]
